FAERS Safety Report 8602527-5 (Version None)
Quarter: 2012Q3

REPORT INFORMATION
  Report Type: 
  Country: None (occurrence: None)
  Receive Date: 20120817
  Receipt Date: 19930604
  Transmission Date: 20120928
  Serious: Yes (Other)
  Sender: FDA-Public Use
  Company Number: US-ROCHE-1101374

PATIENT
  Age: 60 Year
  Sex: Female

DRUGS (8)
  1. TRIDIL [Concomitant]
     Dosage: 50 MG IN 250 ML DSW-DISTILLED WATER
  2. ASPIRIN [Concomitant]
     Route: 048
  3. PROCARDIA [Concomitant]
     Route: 060
  4. ACTIVASE [Suspect]
     Dosage: OVER 1/2 HOUR
  5. ACTIVASE [Suspect]
     Dosage: OVER 1 HOUR
  6. HEPARIN [Concomitant]
  7. ACTIVASE [Suspect]
     Indication: ACUTE MYOCARDIAL INFARCTION
     Dosage: BOLUS
  8. LIDOCAINE [Concomitant]
     Route: 042

REACTIONS (2)
  - BRADYARRHYTHMIA [None]
  - DYSPNOEA [None]
